FAERS Safety Report 24841276 (Version 1)
Quarter: 2025Q1

REPORT INFORMATION
  Report Type: Spontaneous
  Country: JP (occurrence: JP)
  Receive Date: 20250114
  Receipt Date: 20250114
  Transmission Date: 20250408
  Serious: Yes (Hospitalization, Other)
  Sender: INGENUS
  Company Number: JP-INGENUS PHARMACEUTICALS, LLC-2024INF000057

PATIENT
  Age: 25 Year
  Sex: Female

DRUGS (3)
  1. LEVETIRACETAM [Suspect]
     Active Substance: LEVETIRACETAM
     Indication: Generalised tonic-clonic seizure
     Dosage: 1000 MILLIGRAM, QD
     Route: 065
  2. MEROPENEM [Suspect]
     Active Substance: MEROPENEM
     Indication: Brain abscess
     Route: 065
  3. VANCOMYCIN [Concomitant]
     Active Substance: VANCOMYCIN
     Indication: Brain abscess
     Route: 065

REACTIONS (1)
  - Rhabdomyolysis [Recovering/Resolving]
